FAERS Safety Report 10166446 (Version 1)
Quarter: 2014Q2

REPORT INFORMATION
  Report Type: Spontaneous
  Country: US (occurrence: None)
  Receive Date: 20140509
  Receipt Date: 20140509
  Transmission Date: 20141212
  Serious: Yes (Hospitalization, Other)
  Sender: FDA-Public Use
  Company Number: None

PATIENT
  Age: 54 Year
  Sex: Female
  Weight: 67.59 kg

DRUGS (9)
  1. DOCETAXEL [Suspect]
     Indication: OVARIAN CANCER
     Dosage: 75 MG/M^2 EVERY 21 DAYS INTRAVENOUS
     Route: 042
     Dates: start: 20140129, end: 20140416
  2. CISPLATIN [Concomitant]
  3. PACLITAXEL [Concomitant]
  4. CARBOPLATIN [Concomitant]
  5. ONDANSETRON [Concomitant]
  6. DEXAMETHASONE [Concomitant]
  7. DIPHENHYDRAMINE [Concomitant]
  8. FAMOTIDINE [Concomitant]
  9. EMEND [Concomitant]

REACTIONS (4)
  - Skin exfoliation [None]
  - Erythema [None]
  - Oedema [None]
  - Peripheral swelling [None]
